FAERS Safety Report 13995718 (Version 2)
Quarter: 2017Q4

REPORT INFORMATION
  Report Type: Spontaneous
  Country: US (occurrence: US)
  Receive Date: 20170921
  Receipt Date: 20171012
  Transmission Date: 20180321
  Serious: No
  Sender: FDA-Public Use
  Company Number: US-PFIZER INC-2017409600

PATIENT
  Age: 53 Year
  Sex: Male
  Weight: 113.4 kg

DRUGS (1)
  1. LYRICA [Suspect]
     Active Substance: PREGABALIN
     Indication: NEUROPATHY PERIPHERAL
     Dosage: UNK, 2X/DAY
     Route: 048
     Dates: start: 201708, end: 20170917

REACTIONS (3)
  - Pain in extremity [Not Recovered/Not Resolved]
  - Condition aggravated [Not Recovered/Not Resolved]
  - Insomnia [Unknown]

NARRATIVE: CASE EVENT DATE: 20170918
